FAERS Safety Report 6360568-5 (Version None)
Quarter: 2009Q3

REPORT INFORMATION
  Report Type: 
  Country: None (occurrence: None)
  Receive Date: 20090817
  Receipt Date: 20090309
  Transmission Date: 20100115
  Serious: No
  Sender: FDA-Public Use
  Company Number: 20096059

PATIENT
  Sex: Female

DRUGS (1)
  1. LIORESAL [Suspect]
     Indication: MUSCLE SPASTICITY
     Dosage: 600 - 157.55 MCG, DAILY, INTRATHECA
     Route: 037

REACTIONS (10)
  - DRUG INEFFECTIVE [None]
  - HEADACHE [None]
  - HYPERTONIA [None]
  - PAIN [None]
  - PHOTOPHOBIA [None]
  - PRURITUS [None]
  - PYREXIA [None]
  - TACHYCARDIA [None]
  - THINKING ABNORMAL [None]
  - WITHDRAWAL SYNDROME [None]
